FAERS Safety Report 7890299 (Version 2)
Quarter: 2012Q4

REPORT INFORMATION
  Report Type: Report from Study
  Country: DE (occurrence: DE)
  Receive Date: 20110407
  Receipt Date: 20120910
  Transmission Date: 20130627
  Serious: Yes (Hospitalization, Other)
  Sender: FDA-Public Use
  Company Number: DE-ACTELION-A-US2011-47122

PATIENT
  Age: 16 Year
  Sex: Male

DRUGS (2)
  1. VENTAVIS [Suspect]
     Indication: PULMONARY ARTERIAL HYPERTENSION
     Dosage: 5 ug, tid
     Route: 055
     Dates: start: 20090209, end: 201103
  2. VENTAVIS [Suspect]
     Dosage: UNK
     Route: 055

REACTIONS (1)
  - General physical health deterioration [Recovering/Resolving]
